FAERS Safety Report 20238975 (Version 3)
Quarter: 2022Q1

REPORT INFORMATION
  Report Type: Report from Study
  Country: CA (occurrence: CA)
  Receive Date: 20211228
  Receipt Date: 20220114
  Transmission Date: 20220423
  Serious: Yes (Hospitalization, Other)
  Sender: FDA-Public Use
  Company Number: CA-OTSUKA-2021_027691

PATIENT
  Sex: Female

DRUGS (2)
  1. CEDAZURIDINE\DECITABINE [Suspect]
     Active Substance: CEDAZURIDINE\DECITABINE
     Indication: Myelodysplastic syndrome
     Dosage: UNK, 35 MG DECITABINE AND 100 MG CEDAZURIDINE)
     Route: 048
     Dates: start: 20210623
  2. CEDAZURIDINE\DECITABINE [Suspect]
     Active Substance: CEDAZURIDINE\DECITABINE
     Dosage: UNK, 35 MG DECITABINE AND 100 MG CEDAZURIDINE)
     Route: 065
     Dates: start: 202107

REACTIONS (7)
  - Appendicitis [Unknown]
  - Transfusion [Unknown]
  - Abscess intestinal [Unknown]
  - Platelet count decreased [Unknown]
  - Asthenia [Unknown]
  - Back pain [Not Recovered/Not Resolved]
  - Diarrhoea [Recovered/Resolved]
